FAERS Safety Report 15682977 (Version 1)
Quarter: 2018Q4

REPORT INFORMATION
  Report Type: Spontaneous
  Country: FR (occurrence: FR)
  Receive Date: 20181203
  Receipt Date: 20181203
  Transmission Date: 20190205
  Serious: Yes (Hospitalization)
  Sender: FDA-Public Use
  Company Number: FR-AUROBINDO-AUR-APL-2018-057726

PATIENT
  Age: 63 Year
  Sex: Male
  Weight: 94 kg

DRUGS (2)
  1. PRIMPERAN [Suspect]
     Active Substance: METOCLOPRAMIDE HYDROCHLORIDE
     Indication: NAUSEA
     Dosage: 2 DOSAGE FORM, 2 AMPOULES X 31 JOURS
     Route: 042
     Dates: start: 20181008
  2. OXYCODONE [Suspect]
     Active Substance: OXYCODONE
     Indication: PAIN
     Dosage: 10 MILLIGRAM, ONCE A DAY, + BOLUS DE 5 MG
     Route: 042
     Dates: start: 20181009, end: 20181012

REACTIONS (1)
  - Hallucination [Recovered/Resolved]

NARRATIVE: CASE EVENT DATE: 20181012
